FAERS Safety Report 23856816 (Version 1)
Quarter: 2024Q2

REPORT INFORMATION
  Report Type: Spontaneous
  Country: US (occurrence: US)
  Receive Date: 20240515
  Receipt Date: 20240515
  Transmission Date: 20240716
  Serious: No
  Sender: FDA-Public Use
  Company Number: US-DRL-USA-LIT/USA/24/0006960

PATIENT
  Age: 52 Year
  Sex: Female

DRUGS (2)
  1. APREMILAST [Suspect]
     Active Substance: APREMILAST
     Indication: Granuloma annulare
  2. APREMILAST [Suspect]
     Active Substance: APREMILAST

REACTIONS (2)
  - Granuloma annulare [Unknown]
  - Drug ineffective for unapproved indication [Unknown]
